FAERS Safety Report 5108105-7 (Version None)
Quarter: 2006Q3

REPORT INFORMATION
  Report Type: 
  Country: None (occurrence: None)
  Receive Date: 20060919
  Receipt Date: 20060914
  Transmission Date: 20061208
  Serious: Yes (Other)
  Sender: FDA-Public Use
  Company Number: US-JNJFOC-20060903632

PATIENT
  Sex: Female
  Weight: 131.54 kg

DRUGS (7)
  1. TYLENOL (CAPLET) [Suspect]
  2. TYLENOL (CAPLET) [Suspect]
     Indication: ARTHRALGIA
     Dosage: FOR 2 WEEKS
  3. INDERAL [Concomitant]
     Indication: BLOOD PRESSURE INCREASED
     Dosage: BID
  4. INHALER [Concomitant]
     Indication: CHRONIC OBSTRUCTIVE PULMONARY DISEASE
     Dosage: AS NEEDED
  5. ADVAIR DISKUS 100/50 [Concomitant]
     Indication: CHRONIC OBSTRUCTIVE PULMONARY DISEASE
     Dosage: DAILY
  6. ZANTAC [Concomitant]
     Indication: GASTROINTESTINAL DISORDER
     Dosage: DAILY
  7. ALLERGY SHOT [Concomitant]
     Indication: HOUSE DUST ALLERGY
     Dosage: WEEKLY

REACTIONS (2)
  - DYSPNOEA [None]
  - GASTRIC DISORDER [None]
